FAERS Safety Report 21836531 (Version 1)
Quarter: 2023Q1

REPORT INFORMATION
  Report Type: Spontaneous
  Country: TR (occurrence: TR)
  Receive Date: 20230109
  Receipt Date: 20230109
  Transmission Date: 20230417
  Serious: No
  Sender: FDA-Public Use
  Company Number: TR-ALKEM LABORATORIES LIMITED-TR-ALKEM-2022-12219

PATIENT
  Age: 44 Year
  Sex: Female

DRUGS (4)
  1. IBUPROFEN [Suspect]
     Active Substance: IBUPROFEN
     Indication: Rheumatic disorder
     Dosage: UNK
     Route: 048
  2. MELOXICAM [Suspect]
     Active Substance: MELOXICAM
     Indication: Rheumatic disorder
     Dosage: UNK, CUMULATIVE DOSE OF 7.5 MILLIGRAM
     Route: 065
  3. FLURBIPROFEN [Suspect]
     Active Substance: FLURBIPROFEN
     Indication: Rheumatic disorder
     Dosage: UNK
     Route: 048
  4. PIROXICAM [Suspect]
     Active Substance: PIROXICAM
     Indication: Rheumatic disorder
     Dosage: UNK
     Route: 048

REACTIONS (1)
  - Fixed eruption [Unknown]
